FAERS Safety Report 17895581 (Version 1)
Quarter: 2020Q2

REPORT INFORMATION
  Report Type: Spontaneous
  Country: US (occurrence: US)
  Receive Date: 20200615
  Receipt Date: 20200615
  Transmission Date: 20200714
  Serious: No
  Sender: FDA-Public Use
  Company Number: US-FRESENIUS KABI-FK202005792

PATIENT
  Sex: Female
  Weight: 56.75 kg

DRUGS (1)
  1. LACTULOSE 10 G/ 15 ML [Suspect]
     Active Substance: LACTULOSE
     Indication: PRODUCT USED FOR UNKNOWN INDICATION
     Route: 065
     Dates: start: 202001

REACTIONS (6)
  - Tooth loss [Not Recovered/Not Resolved]
  - Tooth injury [Not Recovered/Not Resolved]
  - Weight decreased [Unknown]
  - Tooth fracture [Not Recovered/Not Resolved]
  - Loose tooth [Not Recovered/Not Resolved]
  - Decreased appetite [Recovering/Resolving]
